FAERS Safety Report 9562382 (Version 1)
Quarter: 2013Q3

REPORT INFORMATION
  Report Type: Spontaneous
  Country: US (occurrence: None)
  Receive Date: 20130926
  Receipt Date: 20130926
  Transmission Date: 20140515
  Serious: Yes (Death)
  Sender: FDA-Public Use
  Company Number: None

PATIENT
  Age: 53 Year
  Sex: Male
  Weight: 145.15 kg

DRUGS (1)
  1. MAGNEVIST [Suspect]

REACTIONS (1)
  - Anaphylactic reaction [None]
